FAERS Safety Report 8295262 (Version 3)
Quarter: 2014Q2

REPORT INFORMATION
  Report Type: Spontaneous
  Country: US (occurrence: US)
  Receive Date: 20111216
  Receipt Date: 20140602
  Transmission Date: 20141212
  Serious: Yes (Death)
  Sender: FDA-Public Use
  Company Number: US-GLAXOSMITHKLINE-A0907753A

PATIENT
  Sex: Male

DRUGS (1)
  1. AVANDIA [Suspect]
     Indication: DIABETES MELLITUS
     Dosage: 8MG PER DAY
     Route: 048
     Dates: start: 200206, end: 200610

REACTIONS (4)
  - Cardiac arrest [Fatal]
  - Myocardial ischaemia [Fatal]
  - Pulmonary oedema [Unknown]
  - Fluid retention [Unknown]
